FAERS Safety Report 21508310 (Version 1)
Quarter: 2022Q4

REPORT INFORMATION
  Report Type: Spontaneous
  Country: DK (occurrence: DK)
  Receive Date: 20221026
  Receipt Date: 20221026
  Transmission Date: 20230113
  Serious: Yes (Hospitalization)
  Sender: FDA-Public Use
  Company Number: None

PATIENT
  Age: 61 Year
  Sex: Female

DRUGS (12)
  1. GABAPENTIN [Suspect]
     Active Substance: GABAPENTIN
     Indication: Pruritus
     Route: 065
     Dates: start: 20220915, end: 20220917
  2. ZOLPIDEM [Concomitant]
     Active Substance: ZOLPIDEM TARTRATE
     Indication: Insomnia
     Dates: start: 20190111
  3. FUROSEMIDE [Concomitant]
     Active Substance: FUROSEMIDE
     Indication: Hypertension
     Dates: start: 20210601
  4. ACETAMINOPHEN [Concomitant]
     Active Substance: ACETAMINOPHEN
     Indication: Pain
     Dates: start: 20180228
  5. MAGNESIUM [Concomitant]
     Active Substance: MAGNESIUM
     Indication: Constipation
     Dates: start: 20190927
  6. POTASSIUM CHLORIDE [Concomitant]
     Active Substance: POTASSIUM CHLORIDE
     Indication: Mineral supplementation
     Dates: start: 20210601
  7. ATORVASTATIN [Concomitant]
     Active Substance: ATORVASTATIN
     Indication: Hypercholesterolaemia
     Dates: start: 20210331
  8. ZINC [Concomitant]
     Active Substance: ZINC
     Indication: Zinc deficiency
     Dates: start: 20220913
  9. LITAREX [Concomitant]
     Indication: Mood swings
     Dates: start: 20170109
  10. SOLIFENACIN KRKA [Concomitant]
     Indication: Pollakiuria
     Dates: start: 20191112
  11. PANTOPRAZOL 2CARE4 [Concomitant]
     Indication: Gastrooesophageal reflux disease
     Dates: start: 20211109
  12. IBUPROFEN [Concomitant]
     Active Substance: IBUPROFEN
     Indication: Pain
     Dates: start: 20220518

REACTIONS (3)
  - Chest pain [Recovering/Resolving]
  - Paraesthesia [Recovering/Resolving]
  - Restlessness [Recovering/Resolving]

NARRATIVE: CASE EVENT DATE: 20220917
